FAERS Safety Report 15289604 (Version 1)
Quarter: 2018Q3

REPORT INFORMATION
  Report Type: Spontaneous
  Country: US (occurrence: US)
  Receive Date: 20180803
  Receipt Date: 20180803
  Transmission Date: 20181010
  Serious: Yes (Disabling)
  Sender: FDA-Public Use
  Company Number: None

PATIENT
  Age: 25 Year
  Sex: Female
  Weight: 49.9 kg

DRUGS (4)
  1. LEVOTHYROXINE. [Concomitant]
     Active Substance: LEVOTHYROXINE
  2. MAGNESIUM [Concomitant]
     Active Substance: MAGNESIUM
  3. PROBIOTICS [Concomitant]
     Active Substance: PROBIOTICS NOS
  4. MIRENA [Suspect]
     Active Substance: LEVONORGESTREL
     Dates: start: 20111123, end: 20160428

REACTIONS (12)
  - Candida infection [None]
  - Fungal infection [None]
  - Urinary tract infection [None]
  - Metrorrhagia [None]
  - Infected cyst [None]
  - Menorrhagia [None]
  - Pruritus [None]
  - Bartholin^s cyst [None]
  - Alopecia [None]
  - Impaired work ability [None]
  - Polymenorrhoea [None]
  - Dyspareunia [None]

NARRATIVE: CASE EVENT DATE: 20111123
